FAERS Safety Report 7341638-1 (Version None)
Quarter: 2011Q1

REPORT INFORMATION
  Report Type: 
  Country: None (occurrence: None)
  Receive Date: 20110309
  Receipt Date: 20110301
  Transmission Date: 20110831
  Serious: Yes (Other)
  Sender: FDA-Public Use
  Company Number: US-PFIZER INC-2010059462

PATIENT
  Sex: Female
  Weight: 55.3 kg

DRUGS (15)
  1. ESTRADIOL [Concomitant]
     Indication: HOT FLUSH
     Dosage: 0.5 MG, UNK
  2. DIAZEPAM [Concomitant]
     Indication: ANXIETY DISORDER
     Dosage: 5 MG, 1X/DAY
  3. LASIX [Concomitant]
  4. SIMVASTATIN [Concomitant]
     Indication: BLOOD CHOLESTEROL INCREASED
     Dosage: 40 MG, 1X/DAY
     Route: 048
  5. SUTENT [Suspect]
     Indication: RENAL CANCER
     Dosage: 25 MG, 1X/DAY, 7 DAYS OFF, 7 ON
     Route: 048
     Dates: start: 20061113
  6. HYDROCHLOROTHIAZIDE [Concomitant]
     Indication: HYPERTENSION
     Dosage: 25 MG, 1X/DAY
     Route: 048
  7. VENLAFAXINE [Concomitant]
     Indication: DEPRESSION
     Dosage: 150 MG, UNK
  8. OMEPRAZOLE [Concomitant]
     Indication: GASTROOESOPHAGEAL REFLUX DISEASE
     Dosage: 40 MG, 2X/DAY
  9. FENTANYL [Concomitant]
     Indication: BACK PAIN
     Dosage: 75 MG, UNK
  10. ACCUPRIL [Concomitant]
  11. SYNTHROID [Concomitant]
     Indication: THYROID DISORDER
     Dosage: 0.05 UG, UNK
     Route: 048
  12. QUINAPRIL [Concomitant]
     Indication: HYPERTENSION
     Dosage: 10 MG, 1X/DAY
     Route: 048
  13. GABAPENTIN [Concomitant]
     Indication: AFFECTIVE DISORDER
     Dosage: 300 MG, 1X/DAY
     Route: 048
  14. LUMIGAN [Concomitant]
     Indication: GLAUCOMA
     Dosage: UNK
     Route: 047
  15. OXYCODONE [Concomitant]
     Indication: BACK PAIN
     Dosage: 5 MG, AS NEEDED

REACTIONS (5)
  - DEHYDRATION [None]
  - NERVOUSNESS [None]
  - SYNCOPE [None]
  - HYPOTENSION [None]
  - DIARRHOEA [None]
